FAERS Safety Report 5837616-1 (Version None)
Quarter: 2008Q3

REPORT INFORMATION
  Report Type: 
  Country: None (occurrence: None)
  Receive Date: 20080807
  Receipt Date: 20080730
  Transmission Date: 20090109
  Serious: Yes (Other)
  Sender: FDA-Public Use
  Company Number: PHRM2008FR01493

PATIENT
  Sex: Male

DRUGS (6)
  1. CLOZAPINE [Suspect]
     Indication: HALLUCINATION
     Dosage: 12.5 MG, DAILY
     Route: 048
     Dates: start: 20080116
  2. STALEVO 100 [Concomitant]
     Indication: PARKINSON'S DISEASE
  3. MODOPAR [Concomitant]
     Route: 065
  4. LACTULOSE [Concomitant]
  5. STILNOX [Concomitant]
     Dosage: 1 DF, ONCE/SINGLE
  6. EXELON [Concomitant]
     Dosage: 12 MG/DAY

REACTIONS (3)
  - BLOOD IMMUNOGLOBULIN A DECREASED [None]
  - CHRONIC LYMPHOCYTIC LEUKAEMIA [None]
  - LYMPHOCYTOSIS [None]
